FAERS Safety Report 15974227 (Version 2)
Quarter: 2019Q2

REPORT INFORMATION
  Report Type: Report from Study
  Country: US (occurrence: US)
  Receive Date: 20190218
  Receipt Date: 20190418
  Transmission Date: 20190711
  Serious: Yes (Other)
  Sender: FDA-Public Use
  Company Number: US-ALEXION PHARMACEUTICALS INC.-A201902079

PATIENT
  Sex: Female

DRUGS (1)
  1. SOLIRIS [Suspect]
     Active Substance: ECULIZUMAB
     Indication: ATYPICAL HAEMOLYTIC URAEMIC SYNDROME
     Route: 042

REACTIONS (5)
  - Intervertebral disc protrusion [Unknown]
  - Blood pressure increased [Unknown]
  - Spinal fracture [Unknown]
  - Thyroid disorder [Not Recovered/Not Resolved]
  - Osteoporosis [Unknown]
